FAERS Safety Report 5294069-2 (Version None)
Quarter: 2007Q2

REPORT INFORMATION
  Report Type: 
  Country: None (occurrence: None)
  Receive Date: 20070406
  Receipt Date: 20070322
  Transmission Date: 20071010
  Serious: Yes (Hospitalization)
  Sender: FDA-Public Use
  Company Number: 2007P1000152

PATIENT
  Age: 63 Year
  Sex: Male

DRUGS (1)
  1. RETEPLASE [Suspect]
     Indication: ACUTE MYOCARDIAL INFARCTION
     Dosage: IV
     Route: 042

REACTIONS (2)
  - INFUSION RELATED REACTION [None]
  - PAIN [None]
